FAERS Safety Report 4919850-8 (Version None)
Quarter: 2006Q1

REPORT INFORMATION
  Report Type: 
  Country: None (occurrence: None)
  Receive Date: 20060221
  Receipt Date: 20060221
  Transmission Date: 20060701
  Serious: Yes (Hospitalization, Other)
  Sender: FDA-Public Use
  Company Number: None

PATIENT
  Sex: Male
  Weight: 68.18 kg

DRUGS (5)
  1. FLUOROURACIL [Suspect]
     Indication: RECTAL CANCER
     Dosage: 8500 MG
     Dates: start: 20060109, end: 20060206
  2. XELODA [Suspect]
     Dosage: 51000 MG
     Dates: start: 20050906, end: 20051014
  3. CAMPTOSAR [Suspect]
     Dosage: 360 MG
     Dates: start: 20050907, end: 20051005
  4. LEUCOVORIN CALCIUM [Suspect]
     Dosage: 1400 MG
     Dates: start: 20060109, end: 20060206
  5. ELOXATIN [Suspect]
     Dosage: 300 MG
     Dates: start: 20060109, end: 20060206

REACTIONS (1)
  - GASTROINTESTINAL STOMA COMPLICATION [None]
